FAERS Safety Report 23972223 (Version 3)
Quarter: 2024Q3

REPORT INFORMATION
  Report Type: Report from Study
  Country: US (occurrence: US)
  Receive Date: 20240613
  Receipt Date: 20240918
  Transmission Date: 20241016
  Serious: Yes (Hospitalization)
  Sender: AEGERION
  Company Number: US-AMRYT PHARMACEUTICALS DAC-AEGR007116

PATIENT
  Sex: Female
  Weight: 14.599 kg

DRUGS (1)
  1. FILSUVEZ [Suspect]
     Active Substance: BIRCH TRITERPENES
     Indication: Epidermolysis bullosa
     Dosage: 10 PERCENT W/W GEL (23.4 G), APPLY A 1 MM LAYER TO AFFECTED WOUND SURFACE (S) AT EACH DRESSING CHANG
     Route: 061
     Dates: start: 20240419

REACTIONS (4)
  - Wound [Recovering/Resolving]
  - Pain [Not Recovered/Not Resolved]
  - Pruritus [Not Recovered/Not Resolved]
  - Drug ineffective [Not Recovered/Not Resolved]
